FAERS Safety Report 26100368 (Version 1)
Quarter: 2025Q4

REPORT INFORMATION
  Report Type: Spontaneous
  Country: US (occurrence: US)
  Receive Date: 20251128
  Receipt Date: 20251128
  Transmission Date: 20260118
  Serious: Yes (Hospitalization)
  Sender: SANOFI AVENTIS
  Company Number: US-SA-2025SA354786

PATIENT
  Sex: Female

DRUGS (1)
  1. DUPIXENT [Suspect]
     Active Substance: DUPILUMAB
     Indication: Asthma
     Dosage: 300 MG, QOW
     Route: 058
     Dates: start: 202401

REACTIONS (4)
  - Bronchitis [Recovered/Resolved]
  - Lethargy [Recovered/Resolved]
  - Tenderness [Recovered/Resolved]
  - Urinary tract infection [Recovered/Resolved]

NARRATIVE: CASE EVENT DATE: 20250101
